FAERS Safety Report 12212407 (Version 2)
Quarter: 2016Q2

REPORT INFORMATION
  Report Type: Spontaneous
  Country: US (occurrence: US)
  Receive Date: 20160326
  Receipt Date: 20160603
  Transmission Date: 20160815
  Serious: Yes (Hospitalization, Other)
  Sender: FDA-Public Use
  Company Number: US-BRISTOL-MYERS SQUIBB COMPANY-BMS-2016-021917

PATIENT
  Age: 56 Year
  Sex: Male

DRUGS (4)
  1. ABILIFY [Suspect]
     Active Substance: ARIPIPRAZOLE
     Indication: ANGER
     Dosage: 1 DF, BID
     Route: 048
     Dates: start: 20140919, end: 20141008
  2. ABILIFY [Suspect]
     Active Substance: ARIPIPRAZOLE
     Indication: BIPOLAR I DISORDER
     Dosage: 10 MG, UNK
     Route: 048
     Dates: start: 20140812
  3. ZOLOFT [Concomitant]
     Active Substance: SERTRALINE HYDROCHLORIDE
     Indication: PRODUCT USED FOR UNKNOWN INDICATION
     Route: 065
  4. ABILIFY [Suspect]
     Active Substance: ARIPIPRAZOLE
     Indication: MANIA
     Dosage: 5 MG, QD
     Route: 048
     Dates: start: 20140717, end: 20141008

REACTIONS (9)
  - Kidney infection [Unknown]
  - Balance disorder [Unknown]
  - Abasia [Unknown]
  - Parkinsonism [Unknown]
  - Hydronephrosis [Unknown]
  - Seizure [Unknown]
  - Off label use [Unknown]
  - Somnolence [Unknown]
  - Aphasia [Unknown]

NARRATIVE: CASE EVENT DATE: 20141015
